FAERS Safety Report 7974102-7 (Version None)
Quarter: 2011Q4

REPORT INFORMATION
  Report Type: 
  Country: None (occurrence: None)
  Receive Date: 20111213
  Receipt Date: 20111205
  Transmission Date: 20120403
  Serious: Yes (Hospitalization)
  Sender: FDA-Public Use
  Company Number: GXKR2011DK01104

PATIENT
  Sex: Male

DRUGS (4)
  1. OXALIPLATIN [Suspect]
     Indication: ADJUVANT THERAPY
     Dosage: 260 MG, UNK
     Dates: start: 20110103, end: 20110117
  2. XELODA [Suspect]
     Dosage: 2000+2000 MG DAGLIGT I 14 DAGE.
     Dates: start: 20110103, end: 20110117
  3. OXALIPLATIN [Suspect]
     Dates: start: 20110103, end: 20110117
  4. XELODA [Suspect]
     Indication: ADJUVANT THERAPY
     Dosage: 2000 MG, BID
     Dates: start: 20110103, end: 20110117

REACTIONS (3)
  - VENA CAVA THROMBOSIS [None]
  - NAUSEA [None]
  - VOMITING [None]
